FAERS Safety Report 9721662 (Version 3)
Quarter: 2014Q1

REPORT INFORMATION
  Report Type: Spontaneous
  Country: US (occurrence: US)
  Receive Date: 20131201
  Receipt Date: 20140228
  Transmission Date: 20141002
  Serious: No
  Sender: FDA-Public Use
  Company Number: US-ABBVIE-13P-163-1163476-00

PATIENT
  Age: 82 Year
  Sex: Male

DRUGS (5)
  1. ANDROGEL [Suspect]
     Indication: BLOOD TESTOSTERONE DECREASED
     Dosage: ONE DEPRESSION
     Dates: start: 20131022
  2. ANDROGEL [Suspect]
     Dosage: RESTARTED
     Dates: start: 201312
  3. TERAZOSIN [Concomitant]
     Indication: PROSTATIC DISORDER
  4. TERAZOSIN [Concomitant]
     Indication: PROPHYLAXIS
  5. ZOLPIDEM [Concomitant]
     Indication: INSOMNIA

REACTIONS (5)
  - Penile erythema [Recovered/Resolved]
  - Penile oedema [Recovered/Resolved]
  - Drug administered at inappropriate site [Unknown]
  - Drug dose omission [Unknown]
  - Wrong technique in drug usage process [Unknown]
